FAERS Safety Report 6937635-8 (Version None)
Quarter: 2010Q3

REPORT INFORMATION
  Report Type: 
  Country: None (occurrence: None)
  Receive Date: 20100820
  Receipt Date: 20100820
  Transmission Date: 20110219
  Serious: Yes (Other)
  Sender: FDA-Public Use
  Company Number: None

PATIENT
  Sex: Male
  Weight: 68.9467 kg

DRUGS (1)
  1. TAMSULOSIN HCL [Suspect]
     Indication: BENIGN PROSTATIC HYPERPLASIA
     Dosage: 0.4 MG PRN ORAL
     Route: 048
     Dates: start: 20100802, end: 20100813

REACTIONS (2)
  - BLOOD PRESSURE DECREASED [None]
  - HEART RATE INCREASED [None]
